FAERS Safety Report 5174730-0 (Version None)
Quarter: 2006Q4

REPORT INFORMATION
  Report Type: 
  Country: None (occurrence: None)
  Receive Date: 20061206
  Receipt Date: 20061123
  Transmission Date: 20070319
  Serious: Yes (Other)
  Sender: FDA-Public Use
  Company Number: 2006114288

PATIENT
  Sex: Female

DRUGS (3)
  1. PHENYTOIN SODIUM [Suspect]
     Indication: EPILEPSY
     Dosage: 100 MG (100 MG, 1 IN 1 D), ORAL
     Route: 048
     Dates: start: 19830101
  2. PHENYTOIN [Suspect]
     Indication: EPILEPSY
     Dosage: ORAL
     Route: 048
     Dates: start: 20060101
  3. MULTI-VITAMINS [Concomitant]

REACTIONS (7)
  - CONVULSION [None]
  - DEPRESSION [None]
  - DRY MOUTH [None]
  - EYE DISORDER [None]
  - MALAISE [None]
  - NERVOUSNESS [None]
  - OCULAR VASCULAR DISORDER [None]
